FAERS Safety Report 5384711-X (Version None)
Quarter: 2007Q3

REPORT INFORMATION
  Report Type: 
  Country: None (occurrence: None)
  Receive Date: 20070711
  Receipt Date: 20070629
  Transmission Date: 20080115
  Serious: Yes (Disabling, Other)
  Sender: FDA-Public Use
  Company Number: GR-PFIZER INC-2007053855

PATIENT
  Age: 61 Year
  Sex: Male

DRUGS (5)
  1. XALATAN [Suspect]
     Indication: GLAUCOMA
     Route: 047
     Dates: start: 20050201, end: 20060622
  2. VASTAREL [Concomitant]
     Indication: HYPERTENSION
  3. VITAMIN E [Concomitant]
  4. ASPIRIN [Concomitant]
     Indication: THALASSAEMIA TRAIT
  5. CENTRUM [Concomitant]

REACTIONS (2)
  - MACULAR HOLE [None]
  - VISUAL ACUITY REDUCED [None]
